FAERS Safety Report 9136582 (Version 1)
Quarter: 2013Q1

REPORT INFORMATION
  Report Type: Spontaneous
  Country: US (occurrence: US)
  Receive Date: 20130304
  Receipt Date: 20130304
  Transmission Date: 20140127
  Serious: No
  Sender: FDA-Public Use
  Company Number: US-ABBOTT-12P-163-0952437-00

PATIENT
  Sex: Female
  Weight: 55.39 kg

DRUGS (2)
  1. ANDROGEL PUMP [Suspect]
     Indication: ACCIDENTAL EXPOSURE TO PRODUCT
     Dosage: 4 PUMPS DAILY
  2. ANDROGEL 1.62% [Suspect]
     Indication: ACCIDENTAL EXPOSURE TO PRODUCT

REACTIONS (5)
  - Accidental exposure to product [Not Recovered/Not Resolved]
  - Vaginal infection [Not Recovered/Not Resolved]
  - Urinary tract infection [Recovered/Resolved]
  - Fungal infection [Not Recovered/Not Resolved]
  - pH body fluid abnormal [Not Recovered/Not Resolved]
